FAERS Safety Report 6085598-2 (Version None)
Quarter: 2009Q1

REPORT INFORMATION
  Report Type: 
  Country: None (occurrence: None)
  Receive Date: 20090217
  Receipt Date: 20090217
  Transmission Date: 20090719
  Serious: Yes (Other)
  Sender: FDA-Public Use
  Company Number: None

PATIENT
  Age: 24 Year
  Sex: Female
  Weight: 61.2356 kg

DRUGS (2)
  1. AUGMENTIN '875' [Suspect]
     Indication: OTITIS MEDIA
     Dosage: 875 MG ONCE A DAY PO
     Route: 048
     Dates: start: 20090112, end: 20090126
  2. AUGMENTIN '875' [Suspect]
     Indication: SINUSITIS
     Dosage: 875 MG ONCE A DAY PO
     Route: 048
     Dates: start: 20090112, end: 20090126

REACTIONS (1)
  - STEVENS-JOHNSON SYNDROME [None]
